FAERS Safety Report 6386519-5 (Version None)
Quarter: 2009Q4

REPORT INFORMATION
  Report Type: 
  Country: None (occurrence: None)
  Receive Date: 20091002
  Receipt Date: 20090513
  Transmission Date: 20100525
  Serious: No
  Sender: FDA-Public Use
  Company Number: US-ASTRAZENECA-2009UW06605

PATIENT
  Age: 78 Year
  Sex: Female
  Weight: 88.5 kg

DRUGS (13)
  1. ARIMIDEX [Suspect]
     Indication: BREAST CANCER
     Route: 048
     Dates: start: 20040101
  2. LIPITOR [Concomitant]
  3. ENALAPRIL MALEATE [Concomitant]
  4. CALCIUM WITH D [Concomitant]
  5. ACYCLOVIR [Concomitant]
  6. ACTOS [Concomitant]
  7. ADVAIR DISKUS 100/50 [Concomitant]
  8. FOSAMAX [Concomitant]
  9. AZOPT [Concomitant]
  10. METFORMIN [Concomitant]
  11. COUMADIN [Concomitant]
  12. SPIRONOLACTONE;HYDROCHLORIDE [Concomitant]
  13. RHYTHMOL [Concomitant]

REACTIONS (2)
  - HERPES ZOSTER OPHTHALMIC [None]
  - NERVE COMPRESSION [None]
